FAERS Safety Report 5602394-8 (Version None)
Quarter: 2008Q1

REPORT INFORMATION
  Report Type: 
  Country: None (occurrence: None)
  Receive Date: 20080118
  Receipt Date: 20080104
  Transmission Date: 20080703
  Serious: Yes (Death)
  Sender: FDA-Public Use
  Company Number: 2008001122

PATIENT
  Age: 45 Year
  Sex: Female

DRUGS (7)
  1. DIPHENHYDRAMINE HCL [Suspect]
     Dosage: UNSPECIFIED, ORAL
     Route: 048
  2. FENTANYL [Suspect]
     Dosage: UNSPECIFIED, TRANSDERMAL
     Route: 062
  3. QUETIAPINE FUMARATE [Suspect]
     Dosage: UNSPECIFIED; ORAL
     Route: 048
  4. CITALOPRAM HYDROBROMIDE [Suspect]
     Dosage: UNSPECIFIED, ORAL
     Route: 048
  5. MIRTAZAPINE [Suspect]
     Dosage: UNSPECIFIED, ORAL
     Route: 048
  6. AMLODIPINE/BENAZEPRIL 9AMLODIPINE, BENAZEPRIL) [Suspect]
     Dosage: UNSPECIFIED, ORAL
     Route: 048
  7. PROMETHAZINE [Suspect]
     Dosage: UNSPECIFIED, ORAL
     Route: 048

REACTIONS (3)
  - CARDIAC ARREST [None]
  - DRUG TOXICITY [None]
  - RESPIRATORY ARREST [None]
